FAERS Safety Report 5025518-2 (Version None)
Quarter: 2006Q2

REPORT INFORMATION
  Report Type: 
  Country: None (occurrence: None)
  Receive Date: 20060607
  Receipt Date: 20060526
  Transmission Date: 20061013
  Serious: Yes (Hospitalization)
  Sender: FDA-Public Use
  Company Number: 2006P1000317

PATIENT
  Age: 1 Day
  Sex: Male
  Weight: 1.9 kg

DRUGS (1)
  1. NICARDIPINE HYDROCHLORIDE [Suspect]
     Indication: PRE-ECLAMPSIA
     Dosage: TRPL
     Route: 064
     Dates: start: 20060131, end: 20060201

REACTIONS (6)
  - CAESAREAN SECTION [None]
  - DRUG EXPOSURE DURING PREGNANCY [None]
  - HYPOCALCAEMIA [None]
  - MALAISE [None]
  - NEONATAL DISORDER [None]
  - PREMATURE BABY [None]
